FAERS Safety Report 17440769 (Version 1)
Quarter: 2020Q1

REPORT INFORMATION
  Report Type: Spontaneous
  Country: JP (occurrence: JP)
  Receive Date: 20200220
  Receipt Date: 20200220
  Transmission Date: 20200409
  Serious: Yes (Other)
  Sender: FDA-Public Use
  Company Number: JP-PFIZER INC-2020071794

PATIENT

DRUGS (1)
  1. VFEND [Suspect]
     Active Substance: VORICONAZOLE
     Dosage: 400 DF, DAILY
     Route: 048
     Dates: start: 201909

REACTIONS (2)
  - Altered state of consciousness [Recovered/Resolved]
  - Oedema [Recovered/Resolved]
